FAERS Safety Report 8276765-8 (Version None)
Quarter: 2012Q2

REPORT INFORMATION
  Report Type: 
  Country: None (occurrence: None)
  Receive Date: 20120412
  Receipt Date: 20120404
  Transmission Date: 20120825
  Serious: Yes (Hospitalization)
  Sender: FDA-Public Use
  Company Number: US-BAYER-2011-072794

PATIENT
  Age: 36 Year
  Sex: Female
  Weight: 61.224 kg

DRUGS (4)
  1. YAZ [Suspect]
     Dosage: UNK
     Dates: start: 20070101, end: 20081101
  2. POTASSIUM CHLORIDE [Concomitant]
  3. MOTRIN [Concomitant]
  4. CITALOPRAM HYDROBROMIDE [Concomitant]

REACTIONS (10)
  - ERYTHEMA [None]
  - PAIN IN EXTREMITY [None]
  - ANXIETY [None]
  - PARAESTHESIA [None]
  - EMOTIONAL DISTRESS [None]
  - OEDEMA PERIPHERAL [None]
  - DISCOMFORT [None]
  - PAIN [None]
  - DEEP VEIN THROMBOSIS [None]
  - INJURY [None]
